FAERS Safety Report 8531282-2 (Version None)
Quarter: 2012Q3

REPORT INFORMATION
  Report Type: 
  Country: None (occurrence: None)
  Receive Date: 20120723
  Receipt Date: 20120717
  Transmission Date: 20120928
  Serious: Yes (Other)
  Sender: FDA-Public Use
  Company Number: US-PFIZER INC-2012155897

PATIENT
  Sex: Male

DRUGS (4)
  1. LORATADINE [Concomitant]
     Dosage: UNK
     Dates: start: 20110101
  2. RANITIDINE [Concomitant]
     Dosage: UNK
     Dates: start: 20110101
  3. CHANTIX [Suspect]
     Indication: TOBACCO ABUSE
     Dosage: UNK
  4. TRILIPIX [Concomitant]
     Dosage: UNK
     Dates: start: 20110101

REACTIONS (1)
  - CONVULSION [None]
